FAERS Safety Report 20314818 (Version 1)
Quarter: 2022Q1

REPORT INFORMATION
  Report Type: Spontaneous
  Country: US (occurrence: None)
  Receive Date: 20220110
  Receipt Date: 20220110
  Transmission Date: 20220423
  Serious: Yes (Other)
  Sender: FDA-Public Use
  Company Number: US-ROCHE-2892685

PATIENT

DRUGS (1)
  1. RITUXAN [Suspect]
     Active Substance: RITUXIMAB
     Indication: Rheumatoid arthritis
     Route: 065

REACTIONS (5)
  - COVID-19 [Unknown]
  - Pneumonia [Unknown]
  - Insomnia [Not Recovered/Not Resolved]
  - Nervousness [Unknown]
  - Anxiety [Unknown]
